FAERS Safety Report 24547949 (Version 1)
Quarter: 2024Q4

REPORT INFORMATION
  Report Type: Spontaneous
  Country: US (occurrence: US)
  Receive Date: 20241025
  Receipt Date: 20241025
  Transmission Date: 20250115
  Serious: Yes (Death)
  Sender: VERICEL
  Company Number: US-VERICEL-US-VCEL-24-000366

PATIENT
  Age: 71 Year
  Sex: Male

DRUGS (2)
  1. BROMELAINS [Suspect]
     Active Substance: BROMELAINS
     Indication: Thermal burn
     Dosage: UNK
     Route: 065
     Dates: start: 20240920
  2. BROMELAINS [Suspect]
     Active Substance: BROMELAINS
     Dosage: UNK
     Route: 065
     Dates: start: 20240924

REACTIONS (2)
  - Death [Fatal]
  - Off label use [Unknown]
